FAERS Safety Report 5071993-7 (Version None)
Quarter: 2006Q3

REPORT INFORMATION
  Report Type: 
  Country: None (occurrence: None)
  Receive Date: 20060801
  Receipt Date: 20060714
  Transmission Date: 20061208
  Serious: Yes (Other)
  Sender: FDA-Public Use
  Company Number: 2741

PATIENT
  Age: 21 Year
  Sex: Female
  Weight: 65.7716 kg

DRUGS (1)
  1. AMNESTEEM [Suspect]
     Indication: ACNE CYSTIC
     Dosage: 40 MG, BID, PO
     Route: 048
     Dates: start: 20060324, end: 20060626

REACTIONS (4)
  - AFFECT LABILITY [None]
  - AGGRESSION [None]
  - CRYING [None]
  - MOOD ALTERED [None]
